FAERS Safety Report 7585676-2 (Version None)
Quarter: 2011Q3

REPORT INFORMATION
  Report Type: 
  Country: None (occurrence: None)
  Receive Date: 20110701
  Receipt Date: 20110531
  Transmission Date: 20111222
  Serious: Yes (Disabling, Other)
  Sender: FDA-Public Use
  Company Number: US-BAYER-2011-015839

PATIENT
  Age: 28 Year
  Sex: Female
  Weight: 90.703 kg

DRUGS (11)
  1. PRILOSEC [Concomitant]
     Dosage: 20 MG, UNK
     Route: 048
  2. HYDROCODONE [Concomitant]
     Dosage: 7.5 MG/325 MG
     Route: 048
  3. PHENERGAN HCL [Concomitant]
     Dosage: UNK
     Dates: start: 20091030
  4. YAZ [Suspect]
     Indication: ACNE
     Dosage: UNK
     Route: 048
     Dates: start: 20090401, end: 20090901
  5. YASMIN [Suspect]
     Indication: PRODUCT USED FOR UNKNOWN INDICATION
     Dosage: UNK
     Route: 048
     Dates: start: 20090401, end: 20090901
  6. VICODIN [Concomitant]
     Dosage: UNK
     Dates: start: 20091030
  7. DAILY VITAMINS [Concomitant]
     Route: 048
  8. TOPAMAX [Concomitant]
     Dosage: 50 MG, UNK
     Route: 048
  9. DROSPIRENONE AND ETHINYL ESTRADIOL [Suspect]
     Indication: PRODUCT USED FOR UNKNOWN INDICATION
     Dosage: UNK
     Route: 048
     Dates: start: 20090401, end: 20090901
  10. NUVARING [Concomitant]
     Dosage: UNK
     Dates: start: 20090101
  11. PROMETHAZINE [Concomitant]
     Route: 048

REACTIONS (7)
  - PAIN [None]
  - PANCREATITIS [None]
  - INJURY [None]
  - CHOLECYSTITIS CHRONIC [None]
  - HEPATIC ENZYME INCREASED [None]
  - ARTERIOVENOUS MALFORMATION [None]
  - GALLBLADDER DISORDER [None]
